FAERS Safety Report 10378021 (Version 1)
Quarter: 2014Q3

REPORT INFORMATION
  Report Type: Other
  Country: FR (occurrence: FR)
  Receive Date: 20140812
  Receipt Date: 20140812
  Transmission Date: 20150326
  Serious: Yes (Hospitalization)
  Sender: FDA-Public Use
  Company Number: FR-MYLANLABS-2014M1000747

PATIENT

DRUGS (10)
  1. CARTREX [Suspect]
     Active Substance: ACECLOFENAC
     Dosage: 0.5 DF, QD
     Route: 048
     Dates: start: 2006, end: 20091010
  2. CACIT VITAMIN D3 [Suspect]
     Active Substance: CALCIUM CARBONATE\CHOLECALCIFEROL
     Dosage: UNK
     Route: 048
     Dates: start: 2003, end: 20091010
  3. BETAHISTINE [Suspect]
     Active Substance: BETAHISTINE
     Dosage: 2 DF, QD
     Route: 048
     Dates: start: 2006, end: 20091010
  4. NIFEDIPINE. [Suspect]
     Active Substance: NIFEDIPINE
     Dosage: 1 DF, QD
     Route: 048
     Dates: start: 1997, end: 20091010
  5. SPIRONOLACTONE/ALTIZIDE [Suspect]
     Active Substance: ALTHIAZIDE\SPIRONOLACTONE
     Dosage: 1 DF, QD
     Route: 048
     Dates: start: 199706, end: 20091010
  6. KARDEGIC [Suspect]
     Active Substance: ASPIRIN LYSINE
     Dosage: 1 DF, QD
     Route: 048
     Dates: start: 1997, end: 20091010
  7. ZOLPIDEM TARTRATE. [Suspect]
     Active Substance: ZOLPIDEM TARTRATE
     Dosage: 1 DF, QD
     Route: 048
     Dates: start: 2005, end: 20091010
  8. ACIDE ALENDRONIQUE [Suspect]
     Active Substance: ALENDRONIC ACID
     Dosage: 0.149 DF, QD
     Route: 048
     Dates: start: 2003, end: 20091010
  9. VASTAREL [Suspect]
     Active Substance: TRIMETAZIDINE DIHYDROCHLORIDE
     Dosage: 2 DF, QD
     Route: 048
     Dates: start: 2000, end: 20091010
  10. DEXTROPROPOXYPHENE PARACETAMOL CAFEINE MERCK [Suspect]
     Active Substance: ACETAMINOPHEN\CAFFEINE\PROPOXYPHENE
     Dosage: 4 DF, UNK
     Route: 048
     Dates: start: 1999, end: 20091010

REACTIONS (1)
  - Hepatitis [Recovered/Resolved]

NARRATIVE: CASE EVENT DATE: 20091010
